FAERS Safety Report 24444990 (Version 3)
Quarter: 2024Q4

REPORT INFORMATION
  Report Type: Spontaneous
  Country: CA (occurrence: CA)
  Receive Date: 20241016
  Receipt Date: 20241227
  Transmission Date: 20250115
  Serious: Yes (Other)
  Sender: CELLTRION
  Company Number: CA-PFIZER INC-202400272912

PATIENT

DRUGS (9)
  1. INFLECTRA [Suspect]
     Active Substance: INFLIXIMAB-DYYB
     Indication: Crohn^s disease
     Dosage: 5 MG/KG, WEEKS 0,2,6 THEN Q 8 WEEKS
     Route: 042
     Dates: start: 20220210, end: 20220324
  2. INFLECTRA [Suspect]
     Active Substance: INFLIXIMAB-DYYB
     Dosage: 5 MG/KG, WEEK 0,2,6 THEN Q 8 WEEKS
     Route: 042
     Dates: start: 20221207, end: 20230810
  3. INFLECTRA [Suspect]
     Active Substance: INFLIXIMAB-DYYB
     Dosage: 5 MG/KG, DOSE, THEN A DOSE 4 WEEKS AFTER, THEN EVERY 8 WEEKS
     Route: 042
     Dates: start: 20231116
  4. INFLECTRA [Suspect]
     Active Substance: INFLIXIMAB-DYYB
     Dosage: 5 MG/KG, DOSE, THEN A DOSE 4 WEEKS AFTER, THEN EVERY 8 WEEKS
     Route: 042
     Dates: start: 20240802
  5. INFLECTRA [Suspect]
     Active Substance: INFLIXIMAB-DYYB
     Dosage: 5 MG/KG, DOSE, THEN A DOSE 4 WEEKS AFTER, THEN EVERY 8 WEEKS
     Route: 042
     Dates: start: 20240802
  6. INFLECTRA [Suspect]
     Active Substance: INFLIXIMAB-DYYB
     Dosage: 5 MG/KG, DOSE, THEN A DOSE 4 WEEKS AFTER, THEN EVERY 8 WEEKS
     Route: 042
     Dates: start: 20240802
  7. INFLECTRA [Suspect]
     Active Substance: INFLIXIMAB-DYYB
     Dosage: 5 MG/KG, DOSE, THEN A DOSE 4 WEEKS AFTER, THEN EVERY 8 WEEKS
     Route: 042
     Dates: start: 20240802
  8. INFLECTRA [Suspect]
     Active Substance: INFLIXIMAB-DYYB
     Dosage: 350 MG (5MG/KG), AFTER 19 WEEKS AND 4 DAYS (DOSE, THEN A DOSE 4 WEEKS AFTER, THEN EVERY 8 WEEKS)
     Route: 042
     Dates: start: 20241217
  9. SPIRONOLACTONE [Concomitant]
     Active Substance: SPIRONOLACTONE
     Dosage: 25 MG (25 MG 1CO DIE)
     Dates: start: 20241128

REACTIONS (1)
  - Acne [Unknown]

NARRATIVE: CASE EVENT DATE: 20240101
